FAERS Safety Report 18806786 (Version 1)
Quarter: 2021Q1

REPORT INFORMATION
  Report Type: Spontaneous
  Country: US (occurrence: US)
  Receive Date: 20210128
  Receipt Date: 20210128
  Transmission Date: 20210419
  Serious: Yes (Life-Threatening, Hospitalization, Disabling, Other)
  Sender: FDA-Public Use
  Company Number: None

PATIENT
  Age: 23 Year
  Sex: Male
  Weight: 122.85 kg

DRUGS (1)
  1. OCREVUS [Suspect]
     Active Substance: OCRELIZUMAB
     Indication: MULTIPLE SCLEROSIS
     Dosage: ?          QUANTITY:2 VIALS;OTHER FREQUENCY:EVERY 6 MONTHS;OTHER ROUTE:INTRAVENIOUS?
     Dates: start: 20180919, end: 20201102

REACTIONS (3)
  - Visual impairment [None]
  - Cerebrovascular accident [None]
  - Brain injury [None]

NARRATIVE: CASE EVENT DATE: 20201006
